FAERS Safety Report 13251012 (Version 1)
Quarter: 2017Q1

REPORT INFORMATION
  Report Type: Report from Study
  Country: FR (occurrence: FR)
  Receive Date: 20170220
  Receipt Date: 20170220
  Transmission Date: 20170428
  Serious: Yes (Death, Hospitalization)
  Sender: FDA-Public Use
  Company Number: FR-ROCHE-1894397

PATIENT
  Sex: Male
  Weight: 89 kg

DRUGS (12)
  1. TERALITHE [Concomitant]
     Active Substance: LITHIUM CARBONATE
     Indication: BIPOLAR DISORDER
     Route: 065
     Dates: start: 2002, end: 20140203
  2. MILNACIPRAN [Concomitant]
     Active Substance: MILNACIPRAN
     Indication: ANXIETY
     Route: 065
     Dates: end: 20170203
  3. RIBAVIRIN. [Suspect]
     Active Substance: RIBAVIRIN
     Indication: HEPATITIS C
     Route: 065
     Dates: start: 20150910, end: 20160306
  4. OXAZEPAM. [Concomitant]
     Active Substance: OXAZEPAM
     Indication: ANXIETY
     Route: 065
     Dates: end: 20170203
  5. RIBAVIRIN. [Suspect]
     Active Substance: RIBAVIRIN
     Route: 065
     Dates: start: 20140131, end: 20140718
  6. SOVALDI [Suspect]
     Active Substance: SOFOSBUVIR
     Route: 065
     Dates: start: 20150910, end: 20160306
  7. DAKLINZA [Suspect]
     Active Substance: DACLATASVIR
     Indication: HEPATITIS C
     Route: 065
     Dates: start: 20150910, end: 20160306
  8. SEROPLEX [Concomitant]
     Active Substance: ESCITALOPRAM OXALATE
     Indication: ANXIETY
     Route: 065
     Dates: start: 2002, end: 20170203
  9. ALPRAZOLAM. [Concomitant]
     Active Substance: ALPRAZOLAM
     Indication: BIPOLAR DISORDER
     Route: 065
     Dates: start: 2002, end: 20170203
  10. OROZAMUDOL [Concomitant]
     Active Substance: TRAMADOL
     Indication: PAIN
     Dosage: IF NEEDED
     Route: 065
     Dates: end: 20170203
  11. SOVALDI [Suspect]
     Active Substance: SOFOSBUVIR
     Indication: HEPATITIS C
     Route: 065
     Dates: start: 20140131, end: 20140718
  12. ZOPICLONE [Concomitant]
     Active Substance: ZOPICLONE
     Indication: BIPOLAR DISORDER
     Route: 065
     Dates: start: 2002, end: 20170203

REACTIONS (3)
  - Hepatic failure [Fatal]
  - Cardiac failure [Fatal]
  - Renal failure [Fatal]

NARRATIVE: CASE EVENT DATE: 20170201
